FAERS Safety Report 9316254 (Version 1)
Quarter: 2013Q2

REPORT INFORMATION
  Report Type: Spontaneous
  Country: US (occurrence: None)
  Receive Date: 20130522
  Receipt Date: 20130522
  Transmission Date: 20140414
  Serious: Yes (Other)
  Sender: FDA-Public Use
  Company Number: 20130218

PATIENT
  Age: 45 Year
  Sex: Female
  Weight: 62.14 kg

DRUGS (6)
  1. VENOFER [Suspect]
     Indication: IRON DEFICIENCY ANAEMIA
     Route: 042
     Dates: start: 20130319
  2. OLMESARTAN MEDOXOMIL (BENICAR HCT) [Concomitant]
  3. FERRO-TIME [Concomitant]
  4. ALBUTEROL SULFATE (VENTOLIN) [Concomitant]
  5. BUDESONIDE FORMOTEROL FUMARATE DIHYDRATE (SYMBICORT) [Concomitant]
  6. FEXOFENADINE [Concomitant]

REACTIONS (5)
  - Asthma [None]
  - Respiratory distress [None]
  - Feeling jittery [None]
  - Chills [None]
  - Off label use [None]
